FAERS Safety Report 16025281 (Version 6)
Quarter: 2019Q3

REPORT INFORMATION
  Report Type: Spontaneous
  Country: US (occurrence: US)
  Receive Date: 20190301
  Receipt Date: 20190823
  Transmission Date: 20191004
  Serious: Yes (Other)
  Sender: FDA-Public Use
  Company Number: US-ASTRAZENECA-2018SF26582

PATIENT
  Age: 551 Month
  Sex: Male
  Weight: 77.1 kg

DRUGS (34)
  1. NEXIUM [Suspect]
     Active Substance: ESOMEPRAZOLE MAGNESIUM
     Indication: GASTROOESOPHAGEAL REFLUX DISEASE
     Route: 048
     Dates: start: 20070101, end: 20091231
  2. PRILOSEC [Suspect]
     Active Substance: OMEPRAZOLE MAGNESIUM
     Indication: GASTROOESOPHAGEAL REFLUX DISEASE
     Route: 048
  3. PHENYTOIN. [Concomitant]
     Active Substance: PHENYTOIN
     Indication: SEIZURE
     Dates: start: 2015
  4. LEVOFLOXACIN. [Concomitant]
     Active Substance: LEVOFLOXACIN
     Indication: INFECTION
     Dates: start: 20151002
  5. FLUDROCORTISONE [Concomitant]
     Active Substance: FLUDROCORTISONE
     Indication: URTICARIA
  6. NEXIUM 24HR [Suspect]
     Active Substance: ESOMEPRAZOLE MAGNESIUM
     Route: 048
  7. DICLOFENAC [Concomitant]
     Active Substance: DICLOFENAC
     Indication: PRURITUS
  8. METRONIDAZOLE. [Concomitant]
     Active Substance: METRONIDAZOLE
     Indication: PRURITUS
  9. ONDANSETRON [Concomitant]
     Active Substance: ONDANSETRON
     Indication: URTICARIA
  10. HYDROCODONE [Concomitant]
     Active Substance: HYDROCODONE
     Indication: URTICARIA
  11. DOCUSATE [Concomitant]
     Active Substance: DOCUSATE
  12. ZOLPIDEM [Concomitant]
     Active Substance: ZOLPIDEM TARTRATE
  13. TUMS [Concomitant]
     Active Substance: CALCIUM CARBONATE
  14. METOPROLOL. [Concomitant]
     Active Substance: METOPROLOL
     Indication: PRURITUS
  15. NEXIUM [Suspect]
     Active Substance: ESOMEPRAZOLE MAGNESIUM
     Indication: GASTROOESOPHAGEAL REFLUX DISEASE
     Route: 048
  16. FUROSEMIDE. [Concomitant]
     Active Substance: FUROSEMIDE
     Indication: OEDEMA
     Dates: start: 201602
  17. HYDROCODONE [Concomitant]
     Active Substance: HYDROCODONE
     Indication: URTICARIA
  18. ONDANSETRON [Concomitant]
     Active Substance: ONDANSETRON
     Indication: PRURITUS
  19. PRILOSEC [Suspect]
     Active Substance: OMEPRAZOLE MAGNESIUM
     Indication: GASTROOESOPHAGEAL REFLUX DISEASE
     Dosage: GENERIC-20MG A DAY
     Route: 065
     Dates: start: 2009, end: 2012
  20. DICLOFENAC [Concomitant]
     Active Substance: DICLOFENAC
     Indication: URTICARIA
  21. FLUDROCORTISONE [Concomitant]
     Active Substance: FLUDROCORTISONE
     Indication: PRURITUS
  22. METOPROLOL. [Concomitant]
     Active Substance: METOPROLOL
     Indication: URTICARIA
  23. METRONIDAZOLE. [Concomitant]
     Active Substance: METRONIDAZOLE
     Indication: URTICARIA
  24. HYDROCODONE [Concomitant]
     Active Substance: HYDROCODONE
     Indication: PRURITUS
  25. PSYLLIUM [Concomitant]
     Active Substance: PLANTAGO SEED
  26. PRILOSEC OTC [Suspect]
     Active Substance: OMEPRAZOLE MAGNESIUM
     Route: 048
  27. PREVACID 24 HR [Suspect]
     Active Substance: LANSOPRAZOLE
     Route: 065
  28. PREVACID [Suspect]
     Active Substance: LANSOPRAZOLE
     Route: 065
  29. ACETAMINOPHEN. [Concomitant]
     Active Substance: ACETAMINOPHEN
     Indication: PRURITUS
  30. ACETAMINOPHEN. [Concomitant]
     Active Substance: ACETAMINOPHEN
     Indication: URTICARIA
  31. HYDROCODONE [Concomitant]
     Active Substance: HYDROCODONE
     Indication: PRURITUS
  32. FUROSEMIDE. [Concomitant]
     Active Substance: FUROSEMIDE
  33. SODIUM CITRATE. [Concomitant]
     Active Substance: SODIUM CITRATE
     Indication: PRURITUS
  34. SODIUM CITRATE. [Concomitant]
     Active Substance: SODIUM CITRATE
     Indication: URTICARIA

REACTIONS (6)
  - Renal injury [Unknown]
  - End stage renal disease [Unknown]
  - Metabolic acidosis [Unknown]
  - Nephrogenic anaemia [Unknown]
  - Acute kidney injury [Not Recovered/Not Resolved]
  - Chronic kidney disease [Not Recovered/Not Resolved]

NARRATIVE: CASE EVENT DATE: 201509
